FAERS Safety Report 8350994-7 (Version None)
Quarter: 2012Q2

REPORT INFORMATION
  Report Type: 
  Country: None (occurrence: None)
  Receive Date: 20120510
  Receipt Date: 20120506
  Transmission Date: 20120825
  Serious: No
  Sender: FDA-Public Use
  Company Number: US-BAYER-2012-045320

PATIENT
  Age: 15 Year
  Sex: Female
  Weight: 54 kg

DRUGS (2)
  1. NAPROXEN SODIUM [Suspect]
     Indication: DYSMENORRHOEA
     Dosage: DAILY DOSE 1980 MG
     Route: 048
     Dates: start: 20120506
  2. AMOXICILLIN [Suspect]
     Dosage: DAILY DOSE 1000 MG
     Route: 048
     Dates: start: 20120506

REACTIONS (1)
  - NO ADVERSE EVENT [None]
